FAERS Safety Report 7014422-6 (Version None)
Quarter: 2010Q3

REPORT INFORMATION
  Report Type: 
  Country: None (occurrence: None)
  Receive Date: 20100927
  Receipt Date: 20100702
  Transmission Date: 20110219
  Serious: No
  Sender: FDA-Public Use
  Company Number: US-MYLANLABS-2010S1011990

PATIENT
  Age: 74 Year
  Sex: Female
  Weight: 54.43 kg

DRUGS (8)
  1. CARVEDILOL [Suspect]
     Route: 048
     Dates: start: 20100525, end: 20100628
  2. CARVEDILOL [Suspect]
     Route: 048
     Dates: start: 20100701
  3. ZOCOR [Concomitant]
     Indication: BLOOD CHOLESTEROL INCREASED
  4. LEVOTHYROXINE SODIUM [Concomitant]
     Indication: HYPOTHYROIDISM
  5. FLUTICASONE PROPIONATE [Concomitant]
     Indication: NASAL CONGESTION
  6. PRILOSEC [Concomitant]
     Dosage: OTC
  7. VITAMINS [Concomitant]
  8. FISH OIL [Concomitant]

REACTIONS (3)
  - BLOOD PRESSURE FLUCTUATION [None]
  - MUSCULOSKELETAL PAIN [None]
  - NECK PAIN [None]
